FAERS Safety Report 6189722-2 (Version None)
Quarter: 2009Q2

REPORT INFORMATION
  Report Type: 
  Country: None (occurrence: None)
  Receive Date: 20090512
  Receipt Date: 20090512
  Transmission Date: 20091009
  Serious: Yes (Hospitalization)
  Sender: FDA-Public Use
  Company Number: None

PATIENT
  Age: 40 Year
  Sex: Male

DRUGS (12)
  1. EFFEXOR XR [Suspect]
     Indication: DEPRESSION
     Dosage: 150 MG TWICE DAILY PO
     Route: 048
     Dates: start: 20080311, end: 20080906
  2. EFFEXOR XR [Suspect]
     Indication: NEURALGIA
     Dosage: 150 MG TWICE DAILY PO
     Route: 048
     Dates: start: 20080311, end: 20080906
  3. AMITRIPTYLINE HCL [Suspect]
     Indication: COUGH
     Dosage: 100 MG DAILY PO
     Route: 048
     Dates: start: 20080311, end: 20080414
  4. DEXTROMETHORPH DEXTROMETHORPHAN DOSE UNKNOWN BOTH DRUGS DC'D IN HOSPIT [Suspect]
     Dosage: DEXTROMETHORPHAN DM NOT KNOWN PO
     Route: 048
  5. VENLAFAXINE HCL EXTENDED-RELEASE [Concomitant]
  6. ACETAMINOPHEN AND HYDROCODONE BITARTRATE [Concomitant]
  7. ACETAMINOPHEN [Concomitant]
  8. QUIETAPINE [Concomitant]
  9. GABAPENTIN [Concomitant]
  10. CLONAZEPAM [Concomitant]
  11. ZOLPIDEM CR [Concomitant]
  12. LEVOTHYROXINE SODIUM [Concomitant]

REACTIONS (1)
  - SEROTONIN SYNDROME [None]
